FAERS Safety Report 11330773 (Version 1)
Quarter: 2015Q3

REPORT INFORMATION
  Report Type: Spontaneous
  Country: US (occurrence: US)
  Receive Date: 20150803
  Receipt Date: 20150803
  Transmission Date: 20151125
  Serious: No
  Sender: FDA-Public Use
  Company Number: US-GLAXOSMITHKLINE-US2015GSK098460

PATIENT
  Age: 59 Year
  Sex: Male

DRUGS (2)
  1. TANZEUM [Suspect]
     Active Substance: ALBIGLUTIDE
     Indication: TYPE 2 DIABETES MELLITUS
     Dosage: 30 MG, WE
     Route: 042
     Dates: start: 20150517
  2. PREDNISONE. [Suspect]
     Active Substance: PREDNISONE
     Indication: PRODUCT USED FOR UNKNOWN INDICATION
     Dosage: UNK
     Dates: start: 20150703

REACTIONS (10)
  - Infection [Unknown]
  - Peripheral swelling [Unknown]
  - Immune system disorder [Unknown]
  - Pyrexia [Unknown]
  - Tremor [Unknown]
  - Erythema [Unknown]
  - Drug interaction [Unknown]
  - Emergency care [Unknown]
  - Dermatitis contact [Unknown]
  - Condition aggravated [Unknown]

NARRATIVE: CASE EVENT DATE: 20150703
